FAERS Safety Report 9334377 (Version 1)
Quarter: 2013Q2

REPORT INFORMATION
  Report Type: Spontaneous
  Country: US (occurrence: US)
  Receive Date: 20130606
  Receipt Date: 20130606
  Transmission Date: 20140414
  Serious: No
  Sender: FDA-Public Use
  Company Number: US-AMGEN-USASP2013028691

PATIENT
  Age: 81 Year
  Sex: Female

DRUGS (5)
  1. PROLIA [Suspect]
     Indication: PRODUCT USED FOR UNKNOWN INDICATION
     Dosage: UNK
     Dates: start: 201111
  2. MULTIVITAMIN                       /07504101/ [Concomitant]
  3. TRIAMTERENE [Concomitant]
  4. SIMVASTATIN [Concomitant]
     Dates: start: 2006, end: 2012
  5. COQ10                              /00517201/ [Concomitant]
     Dates: start: 2012

REACTIONS (5)
  - Mobility decreased [Recovered/Resolved]
  - Polymyalgia rheumatica [Unknown]
  - Inflammation [Recovered/Resolved]
  - Arthritis [Recovered/Resolved]
  - Back pain [Unknown]
